FAERS Safety Report 6252947-1 (Version None)
Quarter: 2009Q3

REPORT INFORMATION
  Report Type: 
  Country: None (occurrence: None)
  Receive Date: 20090701
  Receipt Date: 20090622
  Transmission Date: 20100115
  Serious: Yes (Hospitalization)
  Sender: FDA-Public Use
  Company Number: B0506067A

PATIENT
  Sex: Male
  Weight: 50 kg

DRUGS (8)
  1. ARIXTRA [Suspect]
     Indication: THROMBOSIS PROPHYLAXIS
     Dosage: 2.5MG PER DAY
     Route: 058
     Dates: start: 20071114, end: 20071118
  2. RHEUMATREX [Suspect]
     Indication: DRUG USE FOR UNKNOWN INDICATION
     Dosage: 2MG FOUR TIMES PER DAY
     Route: 048
     Dates: start: 20070316
  3. TRANEXAMIC ACID [Concomitant]
     Dates: start: 20071112, end: 20071112
  4. PREDNISOLONE [Concomitant]
     Indication: RHEUMATOID ARTHRITIS
     Dosage: 2.5MG PER DAY
     Route: 048
  5. ADALAT [Concomitant]
     Indication: HYPERTENSION
     Dosage: 20MG PER DAY
     Route: 048
  6. BONALON [Concomitant]
     Dosage: 35MG PER DAY
     Route: 048
  7. VOLTAREN [Concomitant]
     Dosage: 75MG PER DAY
     Route: 048
  8. FOLIAMIN [Concomitant]
     Indication: RHEUMATOID ARTHRITIS
     Dosage: 5MG PER DAY
     Route: 048
     Dates: start: 20070314

REACTIONS (1)
  - POSTOPERATIVE WOUND INFECTION [None]
